FAERS Safety Report 6294207-9 (Version None)
Quarter: 2009Q3

REPORT INFORMATION
  Report Type: 
  Country: None (occurrence: None)
  Receive Date: 20090803
  Receipt Date: 20090302
  Transmission Date: 20100115
  Serious: No
  Sender: FDA-Public Use
  Company Number: A0771078A

PATIENT
  Age: 35 Year
  Sex: Male

DRUGS (1)
  1. NICORETTE WHITE ICE OTC 4MG [Suspect]
     Indication: TOBACCO USER

REACTIONS (2)
  - HICCUPS [None]
  - OROPHARYNGEAL PAIN [None]
